FAERS Safety Report 23663494 (Version 4)
Quarter: 2024Q3

REPORT INFORMATION
  Report Type: Report from Study
  Country: US (occurrence: US)
  Receive Date: 20240322
  Receipt Date: 20240807
  Transmission Date: 20241017
  Serious: Yes (Other)
  Sender: ABBVIE
  Company Number: US-ABBVIE-5624468

PATIENT
  Sex: Male
  Weight: 110.67 kg

DRUGS (9)
  1. VENCLEXTA [Suspect]
     Active Substance: VENETOCLAX
     Indication: Chronic lymphocytic leukaemia
     Dosage: FORM STRENGTH: 100 MILLIGRAM
     Route: 048
     Dates: start: 20240204
  2. VENCLEXTA [Suspect]
     Active Substance: VENETOCLAX
     Indication: Chronic lymphocytic leukaemia
     Dosage: FORM STRENGTH: 50 MILLIGRAM
     Route: 048
     Dates: start: 20240116, end: 20240203
  3. VENCLEXTA [Suspect]
     Active Substance: VENETOCLAX
     Indication: Chronic lymphocytic leukaemia
     Dosage: FORM STRENGTH: 100 MILLIGRAM
     Route: 048
     Dates: start: 202401, end: 202401
  4. VENCLEXTA [Suspect]
     Active Substance: VENETOCLAX
     Indication: Chronic lymphocytic leukaemia
     Route: 048
     Dates: start: 202401, end: 202401
  5. VITAMIN D3 [Concomitant]
     Active Substance: CHOLECALCIFEROL
     Indication: Vitamin supplementation
  6. ZINC [Concomitant]
     Active Substance: ZINC
     Indication: Mineral supplementation
  7. VITAMIN B COMPLEX [Concomitant]
     Active Substance: CYANOCOBALAMIN\DEXPANTHENOL\NIACINAMIDE\PYRIDOXINE HYDROCHLORIDE\RIBOFLAVIN 5^-PHOSPHATE SODIUM\THIA
     Indication: Vitamin supplementation
  8. MECLIZINE [Concomitant]
     Active Substance: MECLIZINE HYDROCHLORIDE
     Indication: Dizziness
  9. TORSEMIDE [Concomitant]
     Active Substance: TORSEMIDE
     Indication: Oedema

REACTIONS (20)
  - Tumour lysis syndrome [Unknown]
  - Fatigue [Recovered/Resolved]
  - Oedema [Not Recovered/Not Resolved]
  - Gait disturbance [Unknown]
  - Brain fog [Not Recovered/Not Resolved]
  - Dizziness [Not Recovered/Not Resolved]
  - Depression [Unknown]
  - Rectal haemorrhage [Unknown]
  - Blood test abnormal [Unknown]
  - Hypertension [Unknown]
  - Polyarthritis [Unknown]
  - Pain [Unknown]
  - Fatigue [Unknown]
  - Arthralgia [Unknown]
  - Pain [Unknown]
  - Apathy [Unknown]
  - Lethargy [Recovering/Resolving]
  - Pelvic pain [Unknown]
  - Emotional disorder [Unknown]
  - Intervertebral disc disorder [Unknown]

NARRATIVE: CASE EVENT DATE: 20240101
